FAERS Safety Report 11372966 (Version 1)
Quarter: 2015Q3

REPORT INFORMATION
  Report Type: Spontaneous
  Country: US (occurrence: US)
  Receive Date: 20150811
  Receipt Date: 20150811
  Transmission Date: 20151125
  Serious: No
  Sender: FDA-Public Use
  Company Number: US-ELI_LILLY_AND_COMPANY-US201202008287

PATIENT
  Age: 60 Year
  Sex: Female
  Weight: 87.08 kg

DRUGS (2)
  1. REMODULIN [Concomitant]
     Active Substance: TREPROSTINIL
     Indication: PULMONARY ARTERIAL HYPERTENSION
     Dosage: 26 DF, UNK
     Route: 058
     Dates: start: 20050308
  2. ADCIRCA [Suspect]
     Active Substance: TADALAFIL

REACTIONS (3)
  - Injection site infection [Unknown]
  - Diarrhoea [Unknown]
  - Pyrexia [Unknown]
